FAERS Safety Report 16427404 (Version 1)
Quarter: 2019Q2

REPORT INFORMATION
  Report Type: Report from Study
  Country: US (occurrence: US)
  Receive Date: 20190613
  Receipt Date: 20190613
  Transmission Date: 20190711
  Serious: No
  Sender: FDA-Public Use
  Company Number: US-IPSEN BIOPHARMACEUTICALS, INC.-2019-09540

PATIENT
  Age: 41 Year
  Sex: Female

DRUGS (2)
  1. CIMZIA [Suspect]
     Active Substance: CERTOLIZUMAB PEGOL
     Indication: RHEUMATOID ARTHRITIS
     Route: 058
     Dates: start: 20190423
  2. SOMATULINE DEPOT [Suspect]
     Active Substance: LANREOTIDE ACETATE
     Indication: ACROMEGALY
     Dosage: INJECTED IN UPPER OUTER BUTTOCK, ROTATE SIDES
     Route: 058
     Dates: start: 20190509

REACTIONS (3)
  - Blister [Unknown]
  - Gastrointestinal hypomotility [Unknown]
  - Madarosis [Unknown]

NARRATIVE: CASE EVENT DATE: 201905
